FAERS Safety Report 5040466-X (Version None)
Quarter: 2006Q2

REPORT INFORMATION
  Report Type: 
  Country: None (occurrence: None)
  Receive Date: 20060630
  Receipt Date: 20060602
  Transmission Date: 20061013
  Serious: Yes (Hospitalization, Other)
  Sender: FDA-Public Use
  Company Number: AR-BRISTOL-MYERS SQUIBB COMPANY-13400643

PATIENT
  Age: 35 Year
  Sex: Female

DRUGS (7)
  1. ORENCIA [Suspect]
     Indication: RHEUMATOID ARTHRITIS
     Route: 042
     Dates: start: 20060328
  2. METHOTREXATE [Suspect]
     Indication: RHEUMATOID ARTHRITIS
     Route: 048
     Dates: start: 20040501
  3. METICORTEN [Concomitant]
     Indication: RHEUMATOID ARTHRITIS
     Route: 048
     Dates: start: 20021110, end: 20060401
  4. NAPROXEN [Concomitant]
     Route: 048
     Dates: start: 20040601
  5. FOLIC ACID [Concomitant]
     Route: 048
     Dates: start: 20040801
  6. VITAMIN D [Concomitant]
     Route: 048
     Dates: start: 20040801
  7. CALCIUM CARBONATE [Concomitant]
     Route: 048
     Dates: start: 20040801

REACTIONS (6)
  - ADRENAL INSUFFICIENCY [None]
  - DUODENITIS [None]
  - HEPATIC STEATOSIS [None]
  - HIATUS HERNIA [None]
  - HYPOKALAEMIA [None]
  - HYPONATRAEMIA [None]
